FAERS Safety Report 22017120 (Version 1)
Quarter: 2023Q1

REPORT INFORMATION
  Report Type: Spontaneous
  Country: MX (occurrence: MX)
  Receive Date: 20230221
  Receipt Date: 20230221
  Transmission Date: 20230418
  Serious: Yes (Death, Hospitalization)
  Sender: FDA-Public Use
  Company Number: MX-BAYER-2023A019835

PATIENT
  Age: 44 Year
  Sex: Female

DRUGS (1)
  1. LAROTRECTINIB [Suspect]
     Active Substance: LAROTRECTINIB
     Indication: Sarcoma uterus
     Dosage: 200 MG, QD
     Route: 048
     Dates: start: 20230201, end: 20230212

REACTIONS (1)
  - Sarcoma uterus [Fatal]

NARRATIVE: CASE EVENT DATE: 20230201
